FAERS Safety Report 7023910-8 (Version None)
Quarter: 2010Q3

REPORT INFORMATION
  Report Type: 
  Country: None (occurrence: None)
  Receive Date: 20100916
  Receipt Date: 20100806
  Transmission Date: 20110219
  Serious: Yes (Other)
  Sender: FDA-Public Use
  Company Number: DKLU1064224

PATIENT
  Age: 7 Month
  Sex: Female

DRUGS (4)
  1. SABRIL [Suspect]
     Indication: INFANTILE SPASMS
     Dosage: SEE IMAGE ORAL
     Route: 048
     Dates: start: 20100724, end: 20100701
  2. PHENOBARBITAL TAB [Concomitant]
  3. VITAMIN B6 [Concomitant]
  4. FOLATE (FOLIC ACID) [Concomitant]

REACTIONS (2)
  - CONVULSION [None]
  - DRUG INEFFECTIVE [None]
